FAERS Safety Report 18536468 (Version 2)
Quarter: 2021Q4

REPORT INFORMATION
  Report Type: Report from Study
  Country: US (occurrence: US)
  Receive Date: 20201123
  Receipt Date: 20211114
  Transmission Date: 20220303
  Serious: Yes (Death, Other)
  Sender: FDA-Public Use
  Company Number: US-BAUSCH-BL-2020-034316

PATIENT
  Age: 80 Year
  Sex: Female

DRUGS (11)
  1. XIFAXAN [Suspect]
     Active Substance: RIFAXIMIN
     Indication: Hepatic cirrhosis
     Route: 048
     Dates: start: 20180622, end: 2020
  2. XIFAXAN [Suspect]
     Active Substance: RIFAXIMIN
     Indication: Hepatic encephalopathy
     Route: 048
     Dates: start: 2020
  3. FUROSEMIDE [Suspect]
     Active Substance: FUROSEMIDE
     Indication: Product used for unknown indication
     Dosage: UNKNOWN DOSE
     Route: 048
  4. FUROSEMIDE [Suspect]
     Active Substance: FUROSEMIDE
     Dosage: FULL TABLET DAILY
     Route: 048
     Dates: start: 20200213
  5. SPIRONOLACTONE [Suspect]
     Active Substance: SPIRONOLACTONE
     Indication: Product used for unknown indication
     Route: 048
  6. SPIRONOLACTONE [Suspect]
     Active Substance: SPIRONOLACTONE
     Route: 048
     Dates: start: 20201022
  7. LACTULOSE [Concomitant]
     Active Substance: LACTULOSE
     Indication: Ammonia increased
     Dosage: 10 GRAM/15 ML
     Route: 048
     Dates: start: 20180622
  8. LACTULOSE [Concomitant]
     Active Substance: LACTULOSE
     Route: 048
     Dates: start: 2020, end: 2020
  9. LACTULOSE [Concomitant]
     Active Substance: LACTULOSE
     Route: 048
     Dates: start: 2020
  10. OMEPRAZOLE [Concomitant]
     Active Substance: OMEPRAZOLE
     Indication: Gastric ulcer
     Route: 048
  11. OMEPRAZOLE [Concomitant]
     Active Substance: OMEPRAZOLE
     Indication: Gastrooesophageal reflux disease
     Route: 048
     Dates: start: 20180622

REACTIONS (39)
  - Death [Fatal]
  - Gastric ulcer haemorrhage [Recovering/Resolving]
  - Blindness [Unknown]
  - Deafness [Unknown]
  - Ammonia increased [Unknown]
  - Cyst [Not Recovered/Not Resolved]
  - Haemorrhoidal haemorrhage [Unknown]
  - Peripheral venous disease [Unknown]
  - Infrequent bowel movements [Recovered/Resolved]
  - Thirst [Unknown]
  - Weight decreased [Not Recovered/Not Resolved]
  - Temperature intolerance [Unknown]
  - Diverticulum intestinal [Unknown]
  - Eye irritation [Unknown]
  - Ocular hyperaemia [Unknown]
  - Increased tendency to bruise [Unknown]
  - Asterixis [Unknown]
  - Fall [Unknown]
  - Confusional state [Unknown]
  - Memory impairment [Unknown]
  - Sinusitis [Unknown]
  - Depression [Unknown]
  - Fatigue [Unknown]
  - Groin pain [Not Recovered/Not Resolved]
  - Paraesthesia [Unknown]
  - Chills [Unknown]
  - Eye pain [Unknown]
  - Chest pain [Recovering/Resolving]
  - Decreased appetite [Not Recovered/Not Resolved]
  - Vomiting [Not Recovered/Not Resolved]
  - Headache [Unknown]
  - Abdominal pain upper [Not Recovered/Not Resolved]
  - Diarrhoea [Not Recovered/Not Resolved]
  - Oedema peripheral [Recovering/Resolving]
  - Nausea [Unknown]
  - Pruritus [Unknown]
  - Rash [Unknown]
  - Therapy interrupted [Unknown]
  - Inability to afford medication [Unknown]

NARRATIVE: CASE EVENT DATE: 20180622
